FAERS Safety Report 12550825 (Version 2)
Quarter: 2016Q3

REPORT INFORMATION
  Report Type: Spontaneous
  Country: AR (occurrence: AR)
  Receive Date: 20160712
  Receipt Date: 20160831
  Transmission Date: 20161109
  Serious: Yes (Other)
  Sender: FDA-Public Use
  Company Number: AR-ASTRAZENECA-2016SE64615

PATIENT
  Age: 23172 Day
  Sex: Female

DRUGS (11)
  1. CALCIUM [Concomitant]
     Active Substance: CALCIUM
     Indication: OSTEOPOROSIS
     Route: 048
  2. ATORVASTATIN [Suspect]
     Active Substance: ATORVASTATIN
     Route: 048
     Dates: end: 201601
  3. PANTOPRAZOLE [Concomitant]
     Active Substance: PANTOPRAZOLE SODIUM
     Indication: PROPHYLAXIS
     Route: 048
  4. METFORMIN [Concomitant]
     Active Substance: METFORMIN HYDROCHLORIDE
     Indication: DIABETES MELLITUS
     Route: 048
     Dates: end: 20150512
  5. GLIMEPIRIDE. [Concomitant]
     Active Substance: GLIMEPIRIDE
     Indication: DIABETES MELLITUS
     Route: 048
  6. ROSUVASTATIN. [Suspect]
     Active Substance: ROSUVASTATIN
     Route: 048
     Dates: start: 20160101, end: 20160405
  7. NAPROXEN. [Concomitant]
     Active Substance: NAPROXEN
     Indication: OSTEOARTHRITIS
     Route: 048
  8. ROSUVASTATIN. [Suspect]
     Active Substance: ROSUVASTATIN
     Route: 048
     Dates: start: 20160405, end: 20160512
  9. CIPROFLOXACIN. [Concomitant]
     Active Substance: CIPROFLOXACIN
     Indication: BACK PAIN
     Route: 048
     Dates: start: 20140807
  10. PLACEBO [Suspect]
     Active Substance: UNSPECIFIED INGREDIENT
     Indication: TYPE 2 DIABETES MELLITUS
     Route: 048
     Dates: start: 20140604, end: 20160512
  11. ALENDRONATE [Concomitant]
     Active Substance: ALENDRONATE SODIUM
     Indication: OSTEOPOROSIS
     Route: 048

REACTIONS (1)
  - Hepatitis E [Recovered/Resolved]

NARRATIVE: CASE EVENT DATE: 20160509
